FAERS Safety Report 8218543-1 (Version None)
Quarter: 2012Q1

REPORT INFORMATION
  Report Type: 
  Country: None (occurrence: None)
  Receive Date: 20120319
  Receipt Date: 20120308
  Transmission Date: 20120608
  Serious: Yes (Hospitalization)
  Sender: FDA-Public Use
  Company Number: 156555

PATIENT
  Age: 59 Year
  Sex: Female
  Weight: 81 kg

DRUGS (5)
  1. SYNTHROID [Concomitant]
     Indication: HYPOTHYROIDISM
  2. ^FLEXAMIN^ [Concomitant]
     Indication: ROUTINE HEALTH MAINTENANCE
  3. AVONEX [Suspect]
     Indication: MULTIPLE SCLEROSIS
     Route: 030
     Dates: start: 20010401
  4. PREMARIN [Concomitant]
     Indication: HORMONE REPLACEMENT THERAPY
  5. UNKNOWN SLEEPING PILL [Concomitant]
     Indication: SLEEP DISORDER

REACTIONS (6)
  - HYPOTENSION [None]
  - CHILLS [None]
  - ARTHRALGIA [None]
  - ANAEMIA POSTOPERATIVE [None]
  - INJECTION SITE PAIN [None]
  - OSTEOARTHRITIS [None]
